FAERS Safety Report 18532453 (Version 1)
Quarter: 2020Q4

REPORT INFORMATION
  Report Type: Spontaneous
  Country: FR (occurrence: FR)
  Receive Date: 20201123
  Receipt Date: 20201123
  Transmission Date: 20210114
  Serious: Yes (Hospitalization)
  Sender: FDA-Public Use
  Company Number: FR-AUROBINDO-AUR-APL-2020-057011

PATIENT
  Age: 71 Year
  Sex: Male
  Weight: 66 kg

DRUGS (2)
  1. BISOPROLOL QUIVER 1,25 MG, TABLETS [Suspect]
     Active Substance: BISOPROLOL FUMARATE
     Indication: HYPERTENSION
     Dosage: 2 DOSAGE FORM, ONCE A DAY
     Route: 048
     Dates: start: 20201023, end: 20201028
  2. RAMIPRIL MYLAN [Suspect]
     Active Substance: RAMIPRIL
     Indication: CHEMOTHERAPY CARDIOTOXICITY ATTENUATION
     Dosage: 2 DOSAGE FORM, ONCE A DAY
     Route: 048
     Dates: start: 20201024, end: 20201028

REACTIONS (3)
  - Hypotension [Recovered/Resolved]
  - Hyponatraemia [Recovering/Resolving]
  - Malaise [Recovered/Resolved]

NARRATIVE: CASE EVENT DATE: 20201024
